FAERS Safety Report 8115253-6 (Version None)
Quarter: 2012Q1

REPORT INFORMATION
  Report Type: 
  Country: None (occurrence: None)
  Receive Date: 20120206
  Receipt Date: 20120201
  Transmission Date: 20120608
  Serious: Yes (Death, Other)
  Sender: FDA-Public Use
  Company Number: US-ASTELLAS-2012US000278

PATIENT
  Sex: Male
  Weight: 73 kg

DRUGS (1)
  1. PROGRAF [Suspect]
     Indication: HEART TRANSPLANT
     Dosage: 3 MG, BID
     Route: 048
     Dates: start: 20070823, end: 20111225

REACTIONS (12)
  - CARDIAC FAILURE ACUTE [None]
  - ARRHYTHMIA [None]
  - SURGICAL VASCULAR SHUNT [None]
  - HEART TRANSPLANT REJECTION [None]
  - CORONARY ARTERY THROMBOSIS [None]
  - ATRIAL FLUTTER [None]
  - SPLENIC GRANULOMA [None]
  - GRANULOMATOUS LIVER DISEASE [None]
  - TREATMENT NONCOMPLIANCE [None]
  - MYOCARDIAL INFARCTION [None]
  - NEPHROSCLEROSIS [None]
  - PULMONARY GRANULOMA [None]
